FAERS Safety Report 5470842-2 (Version None)
Quarter: 2007Q3

REPORT INFORMATION
  Report Type: 
  Country: None (occurrence: None)
  Receive Date: 20070925
  Receipt Date: 20070903
  Transmission Date: 20080115
  Serious: Yes (Other)
  Sender: FDA-Public Use
  Company Number: 6037662

PATIENT
  Age: 42 Year
  Sex: Male

DRUGS (8)
  1. WARFARIN SODIUM [Suspect]
     Indication: AORTIC VALVE REPLACEMENT
     Dosage: 5,5 MG (5,5 MG, 1 IN 1 D)
  2. LOPINAVIR AND RITONAVIR [Suspect]
     Indication: HIV INFECTION
  3. SULFAMETHOXAZOLE + TRIMETHOPRIM [Concomitant]
  4. STEROIDS [Concomitant]
  5. FLUCONAZOLE [Concomitant]
  6. CITALOPRAM (CITALOPRPAM) [Concomitant]
  7. ZIDOVUDINE [Concomitant]
  8. LAMIVUDINE [Concomitant]

REACTIONS (4)
  - DRUG INTERACTION [None]
  - HIV INFECTION [None]
  - INTERNATIONAL NORMALISED RATIO DECREASED [None]
  - PNEUMOCYSTIS JIROVECI INFECTION [None]
